FAERS Safety Report 4576451-1 (Version None)
Quarter: 2005Q1

REPORT INFORMATION
  Report Type: 
  Country: None (occurrence: None)
  Receive Date: 20050209
  Receipt Date: 20030407
  Transmission Date: 20050727
  Serious: Yes (Hospitalization, Disabling, Other)
  Sender: FDA-Public Use
  Company Number: US-MERCK-0304USA00753

PATIENT
  Age: 51 Year
  Sex: Male
  Weight: 118 kg

DRUGS (17)
  1. ASPIRIN [Concomitant]
     Route: 048
  2. PLAVIX [Concomitant]
     Route: 048
     Dates: start: 20000818, end: 20010301
  3. FLONASE [Concomitant]
     Route: 065
  4. VIOXX [Suspect]
     Indication: OSTEOARTHRITIS
     Route: 048
     Dates: start: 20000201, end: 20000822
  5. VIOXX [Suspect]
     Route: 048
     Dates: start: 20010101
  6. VIOXX [Suspect]
     Indication: BACK PAIN
     Route: 048
     Dates: start: 20000201, end: 20000822
  7. VIOXX [Suspect]
     Route: 048
     Dates: start: 20010101
  8. NAPROXEN [Concomitant]
     Route: 065
     Dates: start: 19820101
  9. INDOCIN [Concomitant]
     Route: 048
     Dates: start: 19820101
  10. ZYRTEC [Concomitant]
     Route: 065
     Dates: start: 19950101
  11. PRILOSEC [Concomitant]
     Route: 065
  12. CELEXA [Concomitant]
     Route: 065
     Dates: start: 19990101
  13. ACIPHEX [Concomitant]
     Route: 065
     Dates: start: 19990101
  14. ATENOLOL [Concomitant]
     Route: 065
  15. OXYCONTIN [Concomitant]
     Route: 065
     Dates: start: 20000101, end: 20020101
  16. HYDROCODONE BITARTRATE [Concomitant]
     Indication: BACK PAIN
     Route: 065
     Dates: end: 20000822
  17. LEVSIN PB [Concomitant]
     Route: 065
     Dates: end: 20000822

REACTIONS (22)
  - ACUTE MYOCARDIAL INFARCTION [None]
  - ANGINA PECTORIS [None]
  - ARTHRALGIA [None]
  - ASTHENIA [None]
  - CARDIAC DISORDER [None]
  - CARPAL TUNNEL SYNDROME [None]
  - CORONARY ARTERY ATHEROSCLEROSIS [None]
  - DRUG INEFFECTIVE [None]
  - DYSLIPIDAEMIA [None]
  - FACET JOINT SYNDROME [None]
  - FALL [None]
  - HEADACHE [None]
  - MUSCULAR WEAKNESS [None]
  - NIGHT SWEATS [None]
  - PERIPHERAL COLDNESS [None]
  - PYREXIA [None]
  - ROAD TRAFFIC ACCIDENT [None]
  - ROTATOR CUFF SYNDROME [None]
  - SCAPULA FRACTURE [None]
  - SKIN LACERATION [None]
  - TRIGGER FINGER [None]
  - UMBILICAL HERNIA [None]
